FAERS Safety Report 7077303-8 (Version None)
Quarter: 2010Q4

REPORT INFORMATION
  Report Type: 
  Country: None (occurrence: None)
  Receive Date: 20101029
  Receipt Date: 20101029
  Transmission Date: 20110411
  Serious: No
  Sender: FDA-Public Use
  Company Number: None

PATIENT
  Age: 24 Year
  Sex: Female
  Weight: 97.5234 kg

DRUGS (1)
  1. ETONOGESTREL IMPLANT [Suspect]

REACTIONS (4)
  - ACNE [None]
  - IMPLANT SITE PAIN [None]
  - MENSTRUATION IRREGULAR [None]
  - PAIN [None]
